FAERS Safety Report 9915515 (Version 1)
Quarter: 2014Q1

REPORT INFORMATION
  Report Type: Spontaneous
  Country: JP (occurrence: JP)
  Receive Date: 20140221
  Receipt Date: 20140221
  Transmission Date: 20141002
  Serious: Yes (Other)
  Sender: FDA-Public Use
  Company Number: JP-BRISTOL-MYERS SQUIBB COMPANY-20232500

PATIENT
  Sex: Male

DRUGS (5)
  1. METGLUCO [Suspect]
     Indication: DIABETES MELLITUS
     Route: 048
  2. PRAVASTATIN SODIUM [Suspect]
     Route: 048
  3. AMLODIN [Suspect]
     Indication: HYPERTENSION
     Route: 048
  4. AMARYL [Suspect]
     Route: 048
  5. BLOPRESS [Suspect]
     Route: 048

REACTIONS (1)
  - Liver injury [Recovered/Resolved]
